FAERS Safety Report 5142138-X (Version None)
Quarter: 2006Q4

REPORT INFORMATION
  Report Type: 
  Country: None (occurrence: None)
  Receive Date: 20061027
  Receipt Date: 20061016
  Transmission Date: 20070319
  Serious: Yes (Other)
  Sender: FDA-Public Use
  Company Number: 2006129196

PATIENT
  Age: 65 Year
  Sex: Male

DRUGS (3)
  1. PREDNISONE TAB [Suspect]
     Indication: IMMUNOSUPPRESSION
     Dosage: 5 MG
  2. CYCLOSPORINE [Suspect]
     Indication: IMMUNOSUPPRESSION
     Dosage: 200 MG (100 MG , 2 IN 1 D)
  3. MYCOPHENOLATE MOFETIL [Suspect]
     Dosage: 2500 MG (1250 MG)

REACTIONS (15)
  - ASTHENIA [None]
  - CHILLS [None]
  - DIARRHOEA [None]
  - DRUG TOXICITY [None]
  - ERYTHEMA [None]
  - GASTROENTERITIS CRYPTOSPORIDIAL [None]
  - HAEMODIALYSIS [None]
  - LEPROMATOUS LEPROSY [None]
  - MALAISE [None]
  - NAUSEA [None]
  - OEDEMA [None]
  - PYREXIA [None]
  - RENAL FAILURE [None]
  - RENAL TRANSPLANT [None]
  - WEIGHT DECREASED [None]
